FAERS Safety Report 18670789 (Version 1)
Quarter: 2020Q4

REPORT INFORMATION
  Report Type: Spontaneous
  Country: CN (occurrence: CN)
  Receive Date: 20201228
  Receipt Date: 20201228
  Transmission Date: 20210114
  Serious: Yes (Other)
  Sender: FDA-Public Use
  Company Number: CN-BAXTER-2020BAX026225

PATIENT
  Age: 57 Year
  Sex: Female
  Weight: 46.6 kg

DRUGS (12)
  1. ENDOXAN [Suspect]
     Active Substance: CYCLOPHOSPHAMIDE
     Indication: INVASIVE DUCTAL BREAST CARCINOMA
     Dosage: TEC REGIMEN, 1 TO 4 CYCLES, CYCLOPHOSPHAMIDE + NS
     Route: 041
  2. ENDOXAN [Suspect]
     Active Substance: CYCLOPHOSPHAMIDE
     Dosage: TEC REGIMEN, 5TH CYCLE, CYCLOPHOSPHAMIDE 635 MG + NS 100ML, D1
     Route: 041
     Dates: start: 20201128, end: 20201128
  3. SODIUM CHLORIDE. [Suspect]
     Active Substance: SODIUM CHLORIDE
     Dosage: TEC REGIMEN, 5TH CYCLE, CYCLOPHOSPHAMIDE 635 MG + NS 100ML, D1
     Route: 041
     Dates: start: 20201128, end: 20201128
  4. DOCETAXEL. [Suspect]
     Active Substance: DOCETAXEL
     Indication: INVASIVE DUCTAL BREAST CARCINOMA
     Dosage: TEC REGIMEN, 1 TO 4 CYCLES, DOCETAXEL + NS
     Route: 041
  5. SODIUM CHLORIDE. [Suspect]
     Active Substance: SODIUM CHLORIDE
     Dosage: TEC REGIMEN, 1 TO 4 CYCLES, DOCETAXEL + NS
     Route: 041
  6. EPIRUBICIN HYDROCHLORIDE. [Suspect]
     Active Substance: EPIRUBICIN HYDROCHLORIDE
     Indication: INVASIVE DUCTAL BREAST CARCINOMA
     Dosage: TEC REGIMEN, 1 TO 4 CYCLES, EPIRUBICIN + NS
     Route: 041
  7. SODIUM CHLORIDE. [Suspect]
     Active Substance: SODIUM CHLORIDE
     Dosage: TEC REGIMEN, 1 TO 4 CYCLES, EPIRUBICIN + NS
     Route: 041
  8. SODIUM CHLORIDE. [Suspect]
     Active Substance: SODIUM CHLORIDE
     Dosage: TEC REGIMEN, 5TH CYCLE, DOCETAXEL 95 MG + NS 260ML, D1
     Route: 041
     Dates: start: 20201128, end: 20201128
  9. DOCETAXEL. [Suspect]
     Active Substance: DOCETAXEL
     Dosage: TEC REGIMEN, 5TH CYCLE, DOCETAXEL 95 MG + NS 260ML, D1
     Route: 041
     Dates: start: 20201128, end: 20201128
  10. EPIRUBICIN HYDROCHLORIDE. [Suspect]
     Active Substance: EPIRUBICIN HYDROCHLORIDE
     Dosage: TEC REGIMEN, 5TH CYCLE, EPIRUBICIN 95 MG+ NS 100 ML, D1,
     Route: 041
     Dates: start: 20201128, end: 20201128
  11. SODIUM CHLORIDE. [Suspect]
     Active Substance: SODIUM CHLORIDE
     Dosage: TEC REGIMEN, 5TH CYCLE, EPIRUBICIN 95 MG + NS 100ML, D1
     Route: 041
     Dates: start: 20201128, end: 20201128
  12. SODIUM CHLORIDE. [Suspect]
     Active Substance: SODIUM CHLORIDE
     Indication: MEDICATION DILUTION
     Dosage: TEC REGIMEN, 1 TO 4 CYCLES, CYCLOPHOSPHAMIDE + NS
     Route: 041

REACTIONS (2)
  - Critical illness [Unknown]
  - Myelosuppression [Not Recovered/Not Resolved]

NARRATIVE: CASE EVENT DATE: 20201201
